FAERS Safety Report 9548862 (Version 1)
Quarter: 2013Q3

REPORT INFORMATION
  Report Type: Spontaneous
  Country: CO (occurrence: CO)
  Receive Date: 20130924
  Receipt Date: 20130924
  Transmission Date: 20140515
  Serious: Yes (Other)
  Sender: FDA-Public Use
  Company Number: CO-UCBSA-098043

PATIENT
  Age: 66 Year
  Sex: Female

DRUGS (5)
  1. CIMZIA [Suspect]
     Indication: RHEUMATOID ARTHRITIS
     Route: 058
     Dates: start: 20120625, end: 20130614
  2. PREDNISOLONE [Concomitant]
     Dosage: DAILY DOSE: 20 MG
  3. METHOTREXATE [Concomitant]
  4. CAPTOPRIL [Concomitant]
     Dosage: DAILY DOSE: 100 MG
  5. CEFALEXIN [Concomitant]
     Indication: EYE INFECTION
     Dosage: DAILY DOSE: 1500 MG
     Dates: start: 20130820, end: 20130827

REACTIONS (2)
  - Eye infection [Not Recovered/Not Resolved]
  - Rash [Not Recovered/Not Resolved]
